FAERS Safety Report 8223928-3 (Version None)
Quarter: 2012Q1

REPORT INFORMATION
  Report Type: 
  Country: None (occurrence: None)
  Receive Date: 20120321
  Receipt Date: 20120315
  Transmission Date: 20120608
  Serious: Yes (Hospitalization, Other)
  Sender: FDA-Public Use
  Company Number: BR-PFIZER INC-2012043427

PATIENT
  Age: 77 Year
  Sex: Male
  Weight: 68 kg

DRUGS (3)
  1. SUTENT [Suspect]
     Indication: PANCREATIC NEUROENDOCRINE TUMOUR
     Dosage: 37.5 MG, 1X/DAY (CONTINUE USE)
     Route: 048
     Dates: start: 20120205, end: 20120312
  2. PROPRANOLOL [Concomitant]
     Dosage: 80 MG, 3X/DAY
  3. NIFEDIPINE [Concomitant]
     Dosage: 20 MG, 3X/DAY

REACTIONS (6)
  - ANAEMIA [None]
  - BLOOD PRESSURE INCREASED [None]
  - VARICOSE VEIN [None]
  - DYSPEPSIA [None]
  - BLOOD GLUCOSE INCREASED [None]
  - HYPERTENSION [None]
